FAERS Safety Report 8610352-4 (Version None)
Quarter: 2012Q3

REPORT INFORMATION
  Report Type: 
  Country: None (occurrence: None)
  Receive Date: 20120822
  Receipt Date: 20120814
  Transmission Date: 20120928
  Serious: No
  Sender: FDA-Public Use
  Company Number: PHEH2012US008767

PATIENT
  Sex: Female
  Weight: 75 kg

DRUGS (14)
  1. TASIGNA [Suspect]
     Dosage: 300 MG, BID
     Route: 048
  2. SYNTHROID [Concomitant]
     Dosage: 137 UG
  3. MONOPRIL [Concomitant]
     Dosage: 10 MG
  4. VITAMIN B-12 [Concomitant]
  5. WELLBUTRIN [Concomitant]
     Dosage: 100 MG
  6. ENPRESSE [Concomitant]
     Dosage: 28
  7. TASIGNA [Suspect]
     Dosage: 150 MG, BID
     Route: 048
  8. NEURONTIN [Concomitant]
     Dosage: 100 MG
  9. MULTIVITAMIN [Concomitant]
  10. XANAX [Concomitant]
     Dosage: 1 MG
     Route: 048
  11. CRESTOR [Concomitant]
     Dosage: 10 MG
  12. VALTREX [Concomitant]
     Dosage: 500 MG
  13. LUNESTA [Concomitant]
     Dosage: 3 MG
  14. GLUMETZA [Concomitant]
     Dosage: 1000 MG

REACTIONS (3)
  - DEHYDRATION [None]
  - FATIGUE [None]
  - RASH GENERALISED [None]
